FAERS Safety Report 6643964-8 (Version None)
Quarter: 2010Q1

REPORT INFORMATION
  Report Type: 
  Country: None (occurrence: None)
  Receive Date: 20100304
  Receipt Date: 20091021
  Transmission Date: 20100710
  Serious: Yes (Other)
  Sender: FDA-Public Use
  Company Number: 20091021CINRY1211

PATIENT
  Age: 46 Year
  Sex: Female

DRUGS (1)
  1. CINRYZE [Suspect]
     Indication: HEREDITARY ANGIOEDEMA
     Dosage: (1000 UNIT, EVERY 3-4 DAYS), INTRAVENOUS
     Route: 042
     Dates: start: 20060306

REACTIONS (4)
  - BACK PAIN [None]
  - HEREDITARY ANGIOEDEMA [None]
  - MUSCULOSKELETAL PAIN [None]
  - PAIN IN EXTREMITY [None]
